FAERS Safety Report 6640771-7 (Version None)
Quarter: 2010Q1

REPORT INFORMATION
  Report Type: 
  Country: None (occurrence: None)
  Receive Date: 20100318
  Receipt Date: 20100309
  Transmission Date: 20100710
  Serious: Yes (Other)
  Sender: FDA-Public Use
  Company Number: JP-PFIZER INC-2010033718

PATIENT

DRUGS (1)
  1. SOLANAX [Suspect]
     Dosage: UNK
     Route: 048
     Dates: end: 20090801

REACTIONS (7)
  - BRUXISM [None]
  - DRY EYE [None]
  - EYE PAIN [None]
  - MIDDLE INSOMNIA [None]
  - MUSCLE SPASMS [None]
  - SLEEP DISORDER [None]
  - WITHDRAWAL SYNDROME [None]
